FAERS Safety Report 20769186 (Version 4)
Quarter: 2023Q1

REPORT INFORMATION
  Report Type: Spontaneous
  Country: US (occurrence: US)
  Receive Date: 20220429
  Receipt Date: 20230307
  Transmission Date: 20230418
  Serious: No
  Sender: FDA-Public Use
  Company Number: US-PFIZER INC-202200635851

PATIENT
  Age: 63 Year
  Sex: Female

DRUGS (19)
  1. IBRANCE [Suspect]
     Active Substance: PALBOCICLIB
     Indication: Breast cancer metastatic
     Dosage: 125 MG, CYCLIC (1 TAB DAILY ON DAYS 1 THROUGH 21 EVERY 28 DAYS)
     Route: 048
     Dates: start: 20220329
  2. IBRANCE [Suspect]
     Active Substance: PALBOCICLIB
     Dosage: 125 MG, CYCLIC (ONCE DAILY ON DAYS 1 TO 21, FOLLOWED BY 7 DAYS REST, REPEATED EVERY 28 DAY)
     Route: 048
  3. ACETYLCYSTEINE [Concomitant]
     Active Substance: ACETYLCYSTEINE
     Dosage: UNK
  4. TRAMADOL [Concomitant]
     Active Substance: TRAMADOL
     Dosage: UNK
  5. LETROZOLE [Concomitant]
     Active Substance: LETROZOLE
     Dosage: UNK
  6. LEVOTHYROXINE [Concomitant]
     Active Substance: LEVOTHYROXINE
     Dosage: UNK
  7. MELOXICAM [Concomitant]
     Active Substance: MELOXICAM
     Dosage: UNK
  8. BETA GLUCAN [Concomitant]
     Active Substance: BETA GLUCAN
     Dosage: UNK
  9. QUERCETIN DIHYDRATE [Concomitant]
     Active Substance: QUERCETIN DIHYDRATE
     Dosage: UNK
  10. MAGNESIUM [Concomitant]
     Active Substance: MAGNESIUM
     Dosage: UNK
  11. VITAMIN D3 [Concomitant]
     Active Substance: CHOLECALCIFEROL
     Dosage: UNK
  12. ZINC [Concomitant]
     Active Substance: ZINC
     Dosage: UNK
  13. OMEGA-3 FATTY ACIDS [Concomitant]
     Active Substance: OMEGA-3 FATTY ACIDS
     Dosage: UNK
  14. HERBALS [Concomitant]
     Active Substance: HERBALS
     Dosage: UNK
  15. OMEPRAZOLE [Concomitant]
     Active Substance: OMEPRAZOLE
     Dosage: UNK
  16. ASPIRIN [Concomitant]
     Active Substance: ASPIRIN
     Dosage: UNK
  17. MELATONIN [Concomitant]
     Active Substance: MELATONIN
     Dosage: UNK
  18. STRONTIUM CHLORIDE [Concomitant]
     Active Substance: STRONTIUM CHLORIDE
     Dosage: UNK
  19. LEVOTHYROXINE SODIUM [Concomitant]
     Active Substance: LEVOTHYROXINE SODIUM
     Dosage: UNK

REACTIONS (6)
  - Cough [Unknown]
  - Fatigue [Recovered/Resolved]
  - Decreased appetite [Not Recovered/Not Resolved]
  - Onychomycosis [Unknown]
  - Nail ridging [Unknown]
  - Diarrhoea [Unknown]

NARRATIVE: CASE EVENT DATE: 20220101
